FAERS Safety Report 4300051-1 (Version None)
Quarter: 2004Q1

REPORT INFORMATION
  Report Type: 
  Country: None (occurrence: None)
  Receive Date: 20040220
  Receipt Date: 20040213
  Transmission Date: 20041129
  Serious: Yes (Death)
  Sender: FDA-Public Use
  Company Number: PHBS2004CO02236

PATIENT
  Age: 72 Year
  Sex: Female

DRUGS (3)
  1. STARLIX [Suspect]
     Indication: DIABETES MELLITUS
     Route: 048
     Dates: start: 20011107
  2. ACETYLSALICYLIC ACID SRT [Concomitant]
     Indication: ANTIINFLAMMATORY THERAPY
  3. VERAPAMIL [Concomitant]
     Indication: HYPERTENSION

REACTIONS (1)
  - UTERINE CANCER [None]
